FAERS Safety Report 9663892 (Version 2)
Quarter: 2013Q4

REPORT INFORMATION
  Report Type: Spontaneous
  Country: US (occurrence: US)
  Receive Date: 20131101
  Receipt Date: 20131210
  Transmission Date: 20140711
  Serious: Yes (Other)
  Sender: FDA-Public Use
  Company Number: US-ASTELLAS-2013US011250

PATIENT
  Age: 17 Year
  Sex: Male

DRUGS (9)
  1. PROGRAF [Suspect]
     Indication: LIVER TRANSPLANT
     Dosage: 1 MG, UID/QD
     Route: 048
     Dates: start: 20120114, end: 20120114
  2. PROGRAF [Suspect]
     Dosage: 2 MG, BID
     Route: 048
     Dates: start: 20120115, end: 20120116
  3. PROGRAF [Suspect]
     Dosage: 2 MG, UID/QD, IN THE MORNING
     Route: 048
     Dates: start: 20120117, end: 20130117
  4. PROGRAF [Suspect]
     Dosage: 1 MG, UID/QD, SUSPENSION IN THE MORNING
     Route: 048
     Dates: start: 20120213, end: 20120214
  5. MYCOPHENOLATE MOFETIL [Concomitant]
     Indication: LIVER TRANSPLANT
     Dosage: UNK
     Route: 065
  6. CORTICOSTEROIDS [Concomitant]
     Indication: LIVER TRANSPLANT
     Dosage: UNK
     Route: 065
  7. GANCICLOVIR [Concomitant]
     Indication: ANTIVIRAL PROPHYLAXIS
     Dosage: UNK
     Route: 065
  8. PIPERACILLIN/TAZOBACTAM [Concomitant]
     Indication: PROPHYLAXIS
     Dosage: UNK
     Route: 065
  9. SIMULECT [Concomitant]
     Indication: LIVER TRANSPLANT
     Dosage: UNK
     Route: 065

REACTIONS (2)
  - Pulmonary haemorrhage [Recovered/Resolved]
  - Renal failure [Unknown]
